FAERS Safety Report 8228097-1 (Version None)
Quarter: 2012Q1

REPORT INFORMATION
  Report Type: 
  Country: None (occurrence: None)
  Receive Date: 20120322
  Receipt Date: 20111223
  Transmission Date: 20120608
  Serious: No
  Sender: FDA-Public Use
  Company Number: US-BRISTOL-MYERS SQUIBB COMPANY-16314908

PATIENT
  Age: 62 Year
  Sex: Male

DRUGS (1)
  1. ERBITUX [Suspect]
     Indication: COLORECTAL CANCER
     Dosage: LAST DOSE:21DEC11 NO OF TREATMENTS: 3 OR 4

REACTIONS (1)
  - ACNE [None]
